FAERS Safety Report 7255383-4 (Version None)
Quarter: 2011Q1

REPORT INFORMATION
  Report Type: 
  Country: None (occurrence: None)
  Receive Date: 20110129
  Receipt Date: 20100428
  Transmission Date: 20110831
  Serious: Yes (Other)
  Sender: FDA-Public Use
  Company Number: US-ABBOTT-10P-163-0630038-00

PATIENT

DRUGS (10)
  1. MTX [Concomitant]
     Dosage: 4 TABLETS
     Dates: start: 20080801
  2. HUMIRA [Suspect]
     Indication: PSORIATIC ARTHROPATHY
     Dates: start: 20060720, end: 20090209
  3. FOLIC ACID [Concomitant]
  4. IBUPROFEN [Concomitant]
  5. MTX [Concomitant]
  6. MTX [Concomitant]
  7. SKELAXIN [Concomitant]
  8. DIOVAN [Concomitant]
  9. VICODIN [Concomitant]
  10. DEPO-MEDROL [Concomitant]
     Route: 030
     Dates: start: 20080820, end: 20080820

REACTIONS (11)
  - VISUAL ACUITY REDUCED [None]
  - PYREXIA [None]
  - PSORIATIC ARTHROPATHY [None]
  - PAIN [None]
  - ALOPECIA [None]
  - MULTIPLE SCLEROSIS [None]
  - HEADACHE [None]
  - INSOMNIA [None]
  - LOWER RESPIRATORY TRACT INFECTION [None]
  - WEIGHT DECREASED [None]
  - MIGRAINE [None]
